FAERS Safety Report 24994652 (Version 1)
Quarter: 2025Q1

REPORT INFORMATION
  Report Type: Spontaneous
  Country: US (occurrence: US)
  Receive Date: 20250221
  Receipt Date: 20250221
  Transmission Date: 20250409
  Serious: No
  Sender: GRIFOLS
  Company Number: US-IGSA-BIG0032800

PATIENT
  Age: 48 Year
  Sex: Female
  Weight: 88.9 kg

DRUGS (11)
  1. GAMUNEX-C [Suspect]
     Active Substance: HUMAN IMMUNOGLOBULIN G
     Indication: Myasthenia gravis
     Dosage: 80 GRAM, Q.4WK.
     Route: 042
     Dates: start: 202011
  2. GAMUNEX-C [Suspect]
     Active Substance: HUMAN IMMUNOGLOBULIN G
     Indication: Intentional product use issue
     Route: 042
     Dates: start: 20250124, end: 20250124
  3. TYLENOL [Concomitant]
     Active Substance: ACETAMINOPHEN
     Indication: Premedication
  4. MYCOPHENOLIC ACID [Concomitant]
     Active Substance: MYCOPHENOLIC ACID
  5. PYRIDOSTIGMINE BROMIDE [Concomitant]
     Active Substance: PYRIDOSTIGMINE BROMIDE
  6. PREDNISONE [Concomitant]
     Active Substance: PREDNISONE
  7. AMLODIPINE [Concomitant]
     Active Substance: AMLODIPINE BESYLATE
  8. MONTELUKAST [Concomitant]
     Active Substance: MONTELUKAST
  9. GEMTESA [Concomitant]
     Active Substance: VIBEGRON
  10. ZOFRAN [Concomitant]
     Active Substance: ONDANSETRON HYDROCHLORIDE
  11. ESZOPICLONE [Concomitant]
     Active Substance: ESZOPICLONE

REACTIONS (3)
  - Hypersensitivity [Recovering/Resolving]
  - Rash [Recovering/Resolving]
  - Pruritus [Recovered/Resolved]

NARRATIVE: CASE EVENT DATE: 20250124
